FAERS Safety Report 20527661 (Version 1)
Quarter: 2022Q1

REPORT INFORMATION
  Report Type: Spontaneous
  Country: US (occurrence: US)
  Receive Date: 20220228
  Receipt Date: 20220228
  Transmission Date: 20220423
  Serious: No
  Sender: FDA-Public Use
  Company Number: US-PERRIGO-21US005096

PATIENT
  Age: 88 Year
  Sex: Female
  Weight: 52.154 kg

DRUGS (4)
  1. ESTRADIOL [Suspect]
     Active Substance: ESTRADIOL
     Indication: Urinary tract infection
     Dosage: 1 G, 3 TIMES
     Route: 067
     Dates: start: 20210407, end: 20210410
  2. AMLODIPINE [Concomitant]
     Active Substance: AMLODIPINE BESYLATE
     Indication: Hypertension
     Dosage: UNKNOWN, UNKNOWN
     Route: 065
  3. OMEPRAZOLE [Concomitant]
     Active Substance: OMEPRAZOLE
     Indication: Dyspepsia
     Dosage: UNKNOWN, UNKNOWN
     Route: 065
  4. ROSUVASTATIN                       /01588602/ [Concomitant]
     Indication: Hypertension
     Dosage: UNKNOWN, UNKNOWN
     Route: 065

REACTIONS (7)
  - Eye swelling [Recovered/Resolved]
  - Vulvovaginal swelling [Recovered/Resolved]
  - Vision blurred [Recovered/Resolved]
  - Asthenia [Recovered/Resolved]
  - Dizziness [Recovered/Resolved]
  - Nausea [Recovered/Resolved]
  - Off label use [Recovered/Resolved]

NARRATIVE: CASE EVENT DATE: 20210407
